FAERS Safety Report 10753694 (Version 2)
Quarter: 2015Q1

REPORT INFORMATION
  Report Type: Spontaneous
  Country: BR (occurrence: BR)
  Receive Date: 20150201
  Receipt Date: 20150218
  Transmission Date: 20150721
  Serious: Yes (Death)
  Sender: FDA-Public Use
  Company Number: PHHY2015BR011968

PATIENT
  Sex: Female
  Weight: 70 kg

DRUGS (2)
  1. EXELON PATCH [Suspect]
     Active Substance: RIVASTIGMINE
     Indication: DEMENTIA ALZHEIMER^S TYPE
     Dosage: 1 DF, QD (FORMULATION REPORTED AS 7 MG)
     Route: 058
     Dates: start: 201402, end: 201410
  2. EXELON PATCH [Suspect]
     Active Substance: RIVASTIGMINE
     Dosage: 1 DF, QD (10 MG, AS REPORTED)
     Route: 062
     Dates: start: 201410, end: 20141103

REACTIONS (2)
  - Incorrect route of drug administration [Unknown]
  - Multi-organ failure [Fatal]
